FAERS Safety Report 9812113 (Version 3)
Quarter: 2015Q4

REPORT INFORMATION
  Report Type: Report from Study
  Country: ES (occurrence: ES)
  Receive Date: 20140111
  Receipt Date: 20151224
  Transmission Date: 20160305
  Serious: Yes (Hospitalization)
  Sender: FDA-Public Use
  Company Number: ES-AMGEN-ESPCT2014001098

PATIENT
  Age: 64 Year
  Sex: Male
  Weight: 49 kg

DRUGS (3)
  1. PANITUMUMAB [Suspect]
     Active Substance: PANITUMUMAB
     Indication: GASTRIC CANCER
     Dosage: 259 MG, Q2WK
     Route: 042
     Dates: start: 20130916
  2. DOCETAXEL. [Concomitant]
     Active Substance: DOCETAXEL
     Indication: GASTRIC CANCER
     Dosage: 64 MG, Q2WK
     Route: 042
     Dates: start: 20130916
  3. CISPLATINO [Concomitant]
     Active Substance: CISPLATIN
     Indication: GASTRIC CANCER
     Dosage: 64 MG, Q2WK
     Route: 042
     Dates: start: 20130916

REACTIONS (1)
  - Asthenia [Recovered/Resolved]

NARRATIVE: CASE EVENT DATE: 20140106
